FAERS Safety Report 15707407 (Version 1)
Quarter: 2018Q4

REPORT INFORMATION
  Report Type: Spontaneous
  Country: TW (occurrence: TW)
  Receive Date: 20181211
  Receipt Date: 20181211
  Transmission Date: 20190205
  Serious: Yes (Death, Other)
  Sender: FDA-Public Use
  Company Number: TW-ABBVIE-18P-153-2582508-00

PATIENT
  Age: 24 Year
  Sex: Male

DRUGS (5)
  1. HUMIRA [Suspect]
     Active Substance: ADALIMUMAB
     Route: 058
     Dates: start: 201201
  2. HUMIRA [Suspect]
     Active Substance: ADALIMUMAB
     Route: 058
  3. HUMIRA [Suspect]
     Active Substance: ADALIMUMAB
     Indication: PSORIASIS
     Dosage: LOADING DOSE
     Route: 058
     Dates: start: 201201
  4. HUMIRA [Suspect]
     Active Substance: ADALIMUMAB
     Dosage: SIX MONTHS AFTER HERPES EMERGE BEGAN
     Route: 058
     Dates: start: 201303
  5. HUMIRA [Suspect]
     Active Substance: ADALIMUMAB
     Dosage: PRN
     Route: 058

REACTIONS (12)
  - Bronchiectasis [Recovering/Resolving]
  - Pneumonia [Recovering/Resolving]
  - Sinusitis [Recovered/Resolved]
  - Diarrhoea [Recovered/Resolved]
  - Herpes zoster [Unknown]
  - Adenocarcinoma gastric [Fatal]
  - Herpes zoster [Recovered/Resolved]
  - Psoriasis [Unknown]
  - Gastrointestinal haemorrhage [Fatal]
  - Sepsis [Fatal]
  - Pneumonia [Recovered/Resolved]
  - Otitis media acute [Recovered/Resolved]

NARRATIVE: CASE EVENT DATE: 2012
